FAERS Safety Report 14197981 (Version 1)
Quarter: 2017Q4

REPORT INFORMATION
  Report Type: Spontaneous
  Country: US (occurrence: US)
  Receive Date: 20171117
  Receipt Date: 20171117
  Transmission Date: 20180321
  Serious: No
  Sender: FDA-Public Use
  Company Number: US-CELGENEUS-USA-20171104316

PATIENT
  Age: 77 Year
  Sex: Female

DRUGS (2)
  1. REVLIMID [Suspect]
     Active Substance: LENALIDOMIDE
     Indication: PLASMA CELL MYELOMA
     Dosage: 5 MILLIGRAM
     Route: 048
     Dates: start: 20171012, end: 20171015
  2. ZOLENDRANIC ACID [Concomitant]
     Indication: BLOOD CALCIUM INCREASED
     Dosage: 4 MILLIGRAM
     Route: 065
     Dates: start: 20170927

REACTIONS (3)
  - Epigastric discomfort [Recovered/Resolved]
  - Bladder irritation [Recovered/Resolved]
  - Bone pain [Recovered/Resolved]

NARRATIVE: CASE EVENT DATE: 20171015
